FAERS Safety Report 17046986 (Version 1)
Quarter: 2019Q4

REPORT INFORMATION
  Report Type: Spontaneous
  Country: US (occurrence: US)
  Receive Date: 20191119
  Receipt Date: 20191119
  Transmission Date: 20200122
  Serious: No
  Sender: FDA-Public Use
  Company Number: US-ACCORD-123516

PATIENT
  Age: 68 Year
  Sex: Female
  Weight: 76.2 kg

DRUGS (5)
  1. LEVOTHYROXINE. [Concomitant]
     Active Substance: LEVOTHYROXINE
  2. HYDROCHLOROTHIAZIDE ACCORD [Suspect]
     Active Substance: HYDROCHLOROTHIAZIDE
     Indication: BLOOD PRESSURE MEASUREMENT
     Dosage: STRENGTH: 25 MG
     Route: 048
     Dates: start: 20190417
  3. LORATADINE. [Concomitant]
     Active Substance: LORATADINE
  4. LEVOSALBUTAMOL/LEVOSALBUTAMOL HYDROCHLORIDE/LEVOSALBUTAMOL SULFATE [Concomitant]
  5. LISINOPRIL LUPIN [Concomitant]
     Active Substance: LISINOPRIL

REACTIONS (5)
  - Gluten sensitivity [Not Recovered/Not Resolved]
  - Heart rate decreased [Not Recovered/Not Resolved]
  - Gastric dilatation [Not Recovered/Not Resolved]
  - Feeling abnormal [Not Recovered/Not Resolved]
  - Product substitution issue [Unknown]

NARRATIVE: CASE EVENT DATE: 20190417
